FAERS Safety Report 9192040 (Version 1)
Quarter: 2013Q1

REPORT INFORMATION
  Report Type: Spontaneous
  Country: IN (occurrence: None)
  Receive Date: 20130325
  Receipt Date: 20130325
  Transmission Date: 20140127
  Serious: Yes (Hospitalization, Other)
  Sender: FDA-Public Use
  Company Number: 2013P1003310

PATIENT
  Age: 55 Year
  Sex: Female

DRUGS (5)
  1. ACYCLOVIR [Suspect]
     Indication: VARICELLA
     Route: 048
  2. SODIUM VALPROATE (CON.) [Concomitant]
  3. LITHIUM (CON.) [Concomitant]
  4. QUETIAPINE (CON.) [Concomitant]
  5. THYROXINE (CON.) [Concomitant]

REACTIONS (10)
  - Irritability [None]
  - Logorrhoea [None]
  - Insomnia [None]
  - Distractibility [None]
  - Affect lability [None]
  - Psychomotor hyperactivity [None]
  - Disturbance in attention [None]
  - Blood thyroid stimulating hormone increased [None]
  - Hypomania [None]
  - Stress [None]
